FAERS Safety Report 25949907 (Version 1)
Quarter: 2025Q4

REPORT INFORMATION
  Report Type: Spontaneous
  Country: US (occurrence: US)
  Receive Date: 20251022
  Receipt Date: 20251022
  Transmission Date: 20260117
  Serious: Yes (Hospitalization)
  Sender: PARI RESPIRATORY EQUIPMENT
  Company Number: US-PARI RESPIRATORY EQUIPMENT, INC.-2025PAR00075

PATIENT
  Sex: Female

DRUGS (6)
  1. KITABIS PAK [Suspect]
     Active Substance: TOBRAMYCIN
     Indication: Respiratory disorder
     Dosage: 300 MG, 2X/DAY
     Dates: start: 202508
  2. KITABIS PAK [Suspect]
     Active Substance: TOBRAMYCIN
     Indication: Bronchiectasis
  3. EPINEPHRINE [Concomitant]
     Active Substance: EPINEPHRINE
  4. SODIUM CHLORIDE [Concomitant]
     Active Substance: SODIUM CHLORIDE
  5. DIPHENHYDRAMINE [Concomitant]
     Active Substance: DIPHENHYDRAMINE
  6. SODIUM CHLORIDE [Concomitant]
     Active Substance: SODIUM CHLORIDE

REACTIONS (2)
  - Hospitalisation [Not Recovered/Not Resolved]
  - Off label use [Not Recovered/Not Resolved]

NARRATIVE: CASE EVENT DATE: 20250101
